FAERS Safety Report 21596998 (Version 1)
Quarter: 2022Q4

REPORT INFORMATION
  Report Type: Spontaneous
  Country: US (occurrence: None)
  Receive Date: 20221114
  Receipt Date: 20221114
  Transmission Date: 20230113
  Serious: Yes (Hospitalization)
  Sender: FDA-Public Use
  Company Number: None

PATIENT
  Sex: Male

DRUGS (3)
  1. AMBRISENTAN [Suspect]
     Active Substance: AMBRISENTAN
     Indication: Pulmonary arterial hypertension
     Dosage: FREQUENCY : DAILY;?
     Route: 048
  2. ALYQ [Concomitant]
     Active Substance: TADALAFIL
  3. TADALAFIL [Concomitant]
     Active Substance: TADALAFIL

REACTIONS (8)
  - Acute kidney injury [None]
  - Endocarditis [None]
  - Hepatic cirrhosis [None]
  - Product use issue [None]
  - Therapy interrupted [None]
  - Staphylococcal sepsis [None]
  - Jaundice [None]
  - Gait disturbance [None]
